FAERS Safety Report 11957018 (Version 3)
Quarter: 2016Q1

REPORT INFORMATION
  Report Type: Report from Study
  Country: US (occurrence: US)
  Receive Date: 20160126
  Receipt Date: 20160226
  Transmission Date: 20160526
  Serious: Yes (Other)
  Sender: FDA-Public Use
  Company Number: US-MALLINCKRODT-T201600157

PATIENT
  Age: 57 Year
  Sex: Female
  Weight: 73 kg

DRUGS (2)
  1. REPOSITORY CORTICOTROPIN INJECTION [Suspect]
     Active Substance: CORTICOTROPIN
     Indication: RHEUMATOID ARTHRITIS
     Dosage: 80 UNITS TWICE A WEEK
     Route: 058
     Dates: start: 20151207, end: 20151211
  2. REPOSITORY CORTICOTROPIN INJECTION [Suspect]
     Active Substance: CORTICOTROPIN
     Dosage: 40 UNITS TWICE A WEEK
     Route: 058
     Dates: start: 20160115, end: 201601

REACTIONS (18)
  - Homicidal ideation [Recovered/Resolved]
  - Psychotic disorder [Recovered/Resolved]
  - Bursitis [Not Recovered/Not Resolved]
  - Vomiting [Unknown]
  - Drug dose omission [Recovered/Resolved]
  - Pulmonary mass [Unknown]
  - Crying [Unknown]
  - Feeling jittery [Unknown]
  - Vision blurred [Recovered/Resolved]
  - Heart rate increased [Unknown]
  - Road traffic accident [Unknown]
  - Pain [Not Recovered/Not Resolved]
  - Weight increased [Unknown]
  - Diarrhoea [Recovered/Resolved]
  - Aggression [Unknown]
  - Pneumonia [Unknown]
  - Frustration tolerance decreased [Unknown]
  - Intentional product misuse [Not Recovered/Not Resolved]

NARRATIVE: CASE EVENT DATE: 20150209
